FAERS Safety Report 11067538 (Version 1)
Quarter: 2015Q2

REPORT INFORMATION
  Report Type: Spontaneous
  Country: US (occurrence: US)
  Receive Date: 20150427
  Receipt Date: 20150427
  Transmission Date: 20150821
  Serious: No
  Sender: FDA-Public Use
  Company Number: US-TEVA-531949USA

PATIENT
  Age: 67 Year
  Sex: Female
  Weight: 59.02 kg

DRUGS (7)
  1. CEFALEXIN [Suspect]
     Active Substance: CEPHALEXIN
     Indication: INFECTION
     Dosage: 1500 MILLIGRAM DAILY;
     Route: 065
     Dates: start: 20141122
  2. HYDROCODONE W/ACETAMINOPHEN [Suspect]
     Active Substance: ACETAMINOPHEN\HYDROCODONE BITARTRATE
     Dosage: 7.5/325 EVERY 6 HOURS AS NEEDED
     Route: 065
  3. CHLORTHALIDONE. [Suspect]
     Active Substance: CHLORTHALIDONE
     Dosage: HALF A PILL ONCE A DAY
     Route: 065
  4. LISINOPRIL. [Suspect]
     Active Substance: LISINOPRIL
     Indication: HYPERTENSION
     Dosage: 10 MILLIGRAM DAILY;
     Route: 065
     Dates: start: 2014
  5. ATORVASTATIN [Suspect]
     Active Substance: ATORVASTATIN
     Dosage: 1/2 TAB EVERY EVENING
     Route: 065
  6. LEVOXYL [Suspect]
     Active Substance: LEVOTHYROXINE SODIUM
     Indication: THYROID DISORDER
     Dosage: 75 MICROGRAM DAILY;
     Route: 065
  7. AMLODIPINE BESILATE [Suspect]
     Active Substance: AMLODIPINE BESYLATE
     Indication: HYPERTENSION
     Dosage: 10 MILLIGRAM DAILY;
     Route: 065
     Dates: end: 2014

REACTIONS (5)
  - Abdominal discomfort [Unknown]
  - Abnormal faeces [Not Recovered/Not Resolved]
  - Infection [Unknown]
  - Drug dose omission [Unknown]
  - Swelling [Unknown]

NARRATIVE: CASE EVENT DATE: 201411
